FAERS Safety Report 9475525 (Version 1)
Quarter: 2013Q3

REPORT INFORMATION
  Report Type: Spontaneous
  Country: US (occurrence: None)
  Receive Date: 20130822
  Receipt Date: 20130822
  Transmission Date: 20140515
  Serious: Yes (Hospitalization)
  Sender: FDA-Public Use
  Company Number: None

PATIENT
  Age: 87 Year
  Sex: Male
  Weight: 94.7 kg

DRUGS (2)
  1. MORPHINE [Suspect]
     Indication: PAIN
     Route: 048
     Dates: start: 20130523, end: 20130622
  2. TRAMADOL [Suspect]
     Indication: PAIN
     Route: 048
     Dates: start: 20120912, end: 20130705

REACTIONS (4)
  - Confusional state [None]
  - Cardiovascular disorder [None]
  - Cerebral disorder [None]
  - Low cardiac output syndrome [None]
